FAERS Safety Report 21247256 (Version 3)
Quarter: 2022Q3

REPORT INFORMATION
  Report Type: Report from Study
  Country: US (occurrence: US)
  Receive Date: 20220824
  Receipt Date: 20220914
  Transmission Date: 20221027
  Serious: No
  Sender: FDA-Public Use
  Company Number: US-BIOVITRUM-2022US09779

PATIENT
  Age: 69 Year
  Sex: Female

DRUGS (13)
  1. KINERET [Suspect]
     Active Substance: ANAKINRA
     Indication: Chondrocalcinosis
     Dates: start: 20220804
  2. KINERET [Suspect]
     Active Substance: ANAKINRA
     Dates: start: 20220813
  3. VITAMIN D [Concomitant]
     Active Substance: VITAMIN D NOS
  4. BIOTIN [Concomitant]
     Active Substance: BIOTIN
  5. VITAMINS [Concomitant]
     Active Substance: VITAMINS
  6. GABAPENTIN [Concomitant]
     Active Substance: GABAPENTIN
  7. FOSAMAX [Concomitant]
     Active Substance: ALENDRONATE SODIUM
  8. VITAMIN C [Concomitant]
     Active Substance: ASCORBIC ACID
  9. FISH OIL [Concomitant]
     Active Substance: FISH OIL
  10. ETODOLAC [Concomitant]
     Active Substance: ETODOLAC
  11. FOLIC ACID [Concomitant]
     Active Substance: FOLIC ACID
  12. PREDNISONE [Concomitant]
     Active Substance: PREDNISONE
  13. COLCHICINE [Concomitant]
     Active Substance: COLCHICINE

REACTIONS (8)
  - Muscular weakness [Unknown]
  - Injection site injury [Unknown]
  - Injection site pain [Recovering/Resolving]
  - Injection site bruising [Unknown]
  - Injection site inflammation [Unknown]
  - Injection site urticaria [Unknown]
  - Product administration error [Unknown]
  - Off label use [Not Recovered/Not Resolved]

NARRATIVE: CASE EVENT DATE: 20220813
